FAERS Safety Report 8237468-9 (Version None)
Quarter: 2012Q1

REPORT INFORMATION
  Report Type: 
  Country: None (occurrence: None)
  Receive Date: 20120327
  Receipt Date: 20120319
  Transmission Date: 20120608
  Serious: Yes (Other)
  Sender: FDA-Public Use
  Company Number: PHHY2012GR023909

PATIENT
  Age: 42 Year
  Sex: Male

DRUGS (3)
  1. METHYLPREDNISOLONE [Suspect]
     Indication: ENDOCRINE OPHTHALMOPATHY
     Dosage: 1 G IN 500 ML OF NORMAL SALINE OVER 3 HOURS
     Route: 042
  2. METHIMAZOLE [Concomitant]
     Dosage: 40 MG DAILY IN DIVIDED DOSES
  3. ATENOLOL [Concomitant]
     Dosage: 50 MG, QD

REACTIONS (5)
  - HYPOKALAEMIA [None]
  - PARALYSIS FLACCID [None]
  - HYPOREFLEXIA [None]
  - THYROTOXIC PERIODIC PARALYSIS [None]
  - BLOOD GLUCOSE INCREASED [None]
